FAERS Safety Report 7461137-6 (Version None)
Quarter: 2011Q2

REPORT INFORMATION
  Report Type: 
  Country: None (occurrence: None)
  Receive Date: 20110505
  Receipt Date: 20101022
  Transmission Date: 20111010
  Serious: No
  Sender: FDA-Public Use
  Company Number: US-AMGEN-USASP2010001395

PATIENT
  Age: 58 Year
  Sex: Male

DRUGS (1)
  1. ENBREL [Suspect]
     Indication: PSORIASIS
     Dosage: 50 MG, 2 TIMES/WK
     Dates: start: 20080907

REACTIONS (6)
  - FATIGUE [None]
  - THYROID DISORDER [None]
  - PAIN [None]
  - PSORIASIS [None]
  - MYALGIA [None]
  - HYPERSOMNIA [None]
